FAERS Safety Report 6277750-8 (Version None)
Quarter: 2009Q3

REPORT INFORMATION
  Report Type: 
  Country: None (occurrence: None)
  Receive Date: 20090722
  Receipt Date: 20090713
  Transmission Date: 20100115
  Serious: Yes (Other)
  Sender: FDA-Public Use
  Company Number: B0583109A

PATIENT
  Age: 33 Year
  Sex: Female

DRUGS (5)
  1. KIVEXA [Suspect]
     Dosage: 1TAB PER DAY
     Route: 048
     Dates: start: 20070830
  2. ATAZANAVIR SULFATE [Suspect]
     Dosage: 300MG PER DAY
     Route: 048
     Dates: start: 20070830
  3. RITONAVIR [Suspect]
     Dosage: 100MG PER DAY
     Route: 048
     Dates: start: 20070830
  4. COTRIM [Concomitant]
  5. LORAZEPAM [Concomitant]

REACTIONS (11)
  - BLOOD BILIRUBIN INCREASED [None]
  - CHILLS [None]
  - DRUG HYPERSENSITIVITY [None]
  - HYPOAESTHESIA ORAL [None]
  - LIP SWELLING [None]
  - MUCOSAL EROSION [None]
  - ORAL MUCOSA EROSION [None]
  - PYREXIA [None]
  - RASH [None]
  - RASH MACULO-PAPULAR [None]
  - RASH PRURITIC [None]
